FAERS Safety Report 7915886-3 (Version None)
Quarter: 2011Q4

REPORT INFORMATION
  Report Type: 
  Country: None (occurrence: None)
  Receive Date: 20111115
  Receipt Date: 20111112
  Transmission Date: 20120403
  Serious: Yes (Other)
  Sender: FDA-Public Use
  Company Number: US-PFIZER INC-2011277311

PATIENT
  Sex: Female
  Weight: 104.3 kg

DRUGS (8)
  1. OMEPRAZOLE [Concomitant]
     Dosage: 20 MG, 2X/DAY
  2. PLAQUENIL [Concomitant]
     Dosage: 200 MG , TWO TABLETS ONCE A DAY
  3. ZOLPIDEM [Concomitant]
     Dosage: 10 MG, 1X/DAY AT BEDTIME
  4. LYRICA [Suspect]
     Indication: NEUROPATHY PERIPHERAL
  5. LYRICA [Suspect]
     Indication: SYSTEMIC LUPUS ERYTHEMATOSUS
     Dosage: 75 MG, 1X/DAY AT NIGHT
     Dates: start: 20111001
  6. TOPIRAMATE [Concomitant]
     Dosage: 100 MG, TWO TABLETS ONCE A DAY AT BEDTIME
  7. LEVOTHYROXINE [Concomitant]
     Dosage: 88 MCG
  8. FENTANYL [Concomitant]
     Dosage: 12.5 MG EVERY 72 HOURS

REACTIONS (4)
  - EYE DISORDER [None]
  - DEPRESSION [None]
  - FEELING ABNORMAL [None]
  - SUICIDAL IDEATION [None]
